FAERS Safety Report 6802472-1 (Version None)
Quarter: 2010Q2

REPORT INFORMATION
  Report Type: 
  Country: None (occurrence: None)
  Receive Date: 20100628
  Receipt Date: 20100618
  Transmission Date: 20101027
  Serious: No
  Sender: FDA-Public Use
  Company Number: 2010BI003256

PATIENT
  Age: 29 Year
  Sex: Female

DRUGS (1)
  1. TYSABRI [Suspect]
     Indication: MULTIPLE SCLEROSIS
     Route: 042
     Dates: start: 20061120

REACTIONS (6)
  - ARTHRALGIA [None]
  - ERYTHEMA [None]
  - JOINT SWELLING [None]
  - LIGAMENT PAIN [None]
  - MYALGIA [None]
  - TENDON PAIN [None]
